FAERS Safety Report 9776225 (Version 1)
Quarter: 2013Q4

REPORT INFORMATION
  Report Type: Spontaneous
  Country: IN (occurrence: IN)
  Receive Date: 20131220
  Receipt Date: 20131220
  Transmission Date: 20140711
  Serious: Yes (Hospitalization)
  Sender: FDA-Public Use
  Company Number: IN-MYLANLABS-2013S1027714

PATIENT
  Age: 12 Year
  Sex: Female

DRUGS (3)
  1. TACROLIMUS [Suspect]
     Indication: NEPHROTIC SYNDROME
     Route: 048
  2. PREDNISOLONE [Concomitant]
     Indication: NEPHROTIC SYNDROME
     Dosage: ALTERNATE DAY
     Route: 065
  3. ENALAPRIL [Concomitant]
     Indication: NEPHROTIC SYNDROME
     Dosage: ALTERNATE DAY
     Route: 065

REACTIONS (1)
  - Diabetic ketoacidosis [Recovering/Resolving]
